FAERS Safety Report 14948745 (Version 1)
Quarter: 2018Q2

REPORT INFORMATION
  Report Type: Spontaneous
  Country: JP (occurrence: JP)
  Receive Date: 20180529
  Receipt Date: 20180529
  Transmission Date: 20180711
  Serious: Yes (Other)
  Sender: FDA-Public Use
  Company Number: JP-PFIZER INC-2018217398

PATIENT

DRUGS (2)
  1. LYRICA [Suspect]
     Active Substance: PREGABALIN
  2. LOXONIN [Concomitant]
     Active Substance: LOXOPROFEN SODIUM

REACTIONS (1)
  - Interstitial lung disease [Unknown]
